FAERS Safety Report 5715036-8 (Version None)
Quarter: 2008Q2

REPORT INFORMATION
  Report Type: 
  Country: None (occurrence: None)
  Receive Date: 20080423
  Receipt Date: 20080414
  Transmission Date: 20081010
  Serious: Yes (Hospitalization)
  Sender: FDA-Public Use
  Company Number: FR-PFIZER INC-2008033318

PATIENT
  Sex: Female

DRUGS (18)
  1. FLAGYL [Suspect]
     Indication: PROPHYLAXIS
     Route: 048
     Dates: start: 20071026, end: 20071031
  2. TRIFLUCAN [Suspect]
     Indication: FUNGAL INFECTION
     Route: 048
     Dates: start: 20071025, end: 20071107
  3. CIPROFLOXACIN [Suspect]
     Indication: URINARY TRACT INFECTION
     Route: 048
     Dates: start: 20071025, end: 20071029
  4. SULFAMETHOXAZOLE AND TRIMETHOPRIM [Suspect]
     Indication: SEPSIS
     Route: 048
     Dates: start: 20071031, end: 20071107
  5. ROCEPHIN [Suspect]
     Indication: SEPSIS
     Route: 042
     Dates: start: 20071025, end: 20071109
  6. AMIKACIN [Suspect]
     Indication: SEPSIS
     Route: 042
     Dates: start: 20071029, end: 20071031
  7. TEMOZOLOMIDE [Suspect]
     Indication: CHEMOTHERAPY
     Route: 048
     Dates: start: 20070201, end: 20071020
  8. LOVENOX [Concomitant]
     Route: 058
     Dates: start: 20071025, end: 20071126
  9. DIFFU K [Concomitant]
     Route: 048
     Dates: start: 20071027, end: 20071028
  10. MEDROL [Concomitant]
     Route: 048
  11. NEURONTIN [Concomitant]
     Route: 048
     Dates: start: 20061101, end: 20071006
  12. NEURONTIN [Concomitant]
     Route: 048
  13. INSULIN [Concomitant]
     Route: 042
     Dates: start: 20071025, end: 20071102
  14. INSULIN [Concomitant]
     Route: 058
  15. OMEPRAZOLE [Concomitant]
     Route: 048
  16. PANTOPRAZOLE SODIUM [Concomitant]
     Route: 048
  17. DOLIPRANE [Concomitant]
     Route: 048
  18. OXACILLIN SODIUM [Concomitant]
     Route: 048
     Dates: start: 20071004, end: 20071024

REACTIONS (1)
  - CHOLESTASIS [None]
